FAERS Safety Report 4309339-1 (Version None)
Quarter: 2004Q1

REPORT INFORMATION
  Report Type: 
  Country: None (occurrence: None)
  Receive Date: 20040302
  Receipt Date: 20040225
  Transmission Date: 20041129
  Serious: Yes (Hospitalization)
  Sender: FDA-Public Use
  Company Number: WAES 0402USA01957

PATIENT
  Age: 64 Year
  Sex: Female

DRUGS (5)
  1. FOSAMAX [Suspect]
     Indication: OSTEOPOROSIS
     Route: 048
     Dates: start: 20040210, end: 20040216
  2. ALFAROL [Concomitant]
     Route: 048
     Dates: end: 20040201
  3. MELPHALAN [Suspect]
     Indication: MULTIPLE MYELOMA
     Dates: end: 20040201
  4. PREDONINE [Suspect]
     Dates: end: 20040201
  5. ULCERLMIN [Concomitant]
     Route: 048

REACTIONS (2)
  - ARRHYTHMIA [None]
  - SICK SINUS SYNDROME [None]
